FAERS Safety Report 4475971-8 (Version None)
Quarter: 2004Q4

REPORT INFORMATION
  Report Type: 
  Country: None (occurrence: None)
  Receive Date: 20041012
  Receipt Date: 20041005
  Transmission Date: 20050328
  Serious: Yes (Other)
  Sender: FDA-Public Use
  Company Number: 2004-10-0249

PATIENT
  Age: 46 Year
  Sex: Male
  Weight: 78.9259 kg

DRUGS (5)
  1. PEG-INTRON [Suspect]
     Indication: HEPATITIS C
     Dosage: 150 MCG QQ SUBCUTANEOUS
     Route: 058
     Dates: start: 20040101
  2. RIBAVIRIN [Suspect]
     Indication: HEPATITIS C
     Dosage: 1200 MG QD ORAL
     Route: 048
     Dates: start: 20040101
  3. NAPROSYN [Concomitant]
  4. LEVOTHYROXINE SODIUM [Concomitant]
  5. PROTONX (PANTOPRAZOLE SODIUM) [Concomitant]

REACTIONS (4)
  - DEEP VEIN THROMBOSIS [None]
  - HAEMATOCRIT DECREASED [None]
  - HAEMOGLOBIN DECREASED [None]
  - VENOUS THROMBOSIS LIMB [None]
